FAERS Safety Report 5153632-X (Version None)
Quarter: 2006Q4

REPORT INFORMATION
  Report Type: 
  Country: None (occurrence: None)
  Receive Date: 20061114
  Receipt Date: 20061030
  Transmission Date: 20070319
  Serious: Yes (Death, Life-Threatening, Hospitalization, Other)
  Sender: FDA-Public Use
  Company Number: 2005-11-1118

PATIENT
  Age: 61 Year
  Sex: Male
  Weight: 79 kg

DRUGS (42)
  1. POSACONAZOLE [Suspect]
     Indication: FUNGAL INFECTION
     Dosage: 200 MG;QID;PO
     Route: 048
     Dates: start: 20051103
  2. PROGRAF [Suspect]
     Indication: PROPHYLAXIS AGAINST GRAFT VERSUS HOST DISEASE
     Dosage: 4 MG;PO
     Route: 048
     Dates: start: 20051216, end: 20060223
  3. ACYCLOVIR [Suspect]
     Indication: ANTIVIRAL PROPHYLAXIS
     Dosage: 200 MG;BID;PO
     Route: 048
     Dates: start: 20051222, end: 20060222
  4. SANDIMMUNE [Concomitant]
  5. DECORTIN [Concomitant]
  6. GANCICLOVIR [Concomitant]
  7. CELLCEPT [Concomitant]
  8. BELOC ZOC COMP [Concomitant]
  9. DECORTIN [Concomitant]
  10. KLACID [Concomitant]
  11. MAGNESIUM [Concomitant]
  12. LASIX [Concomitant]
  13. DOPAMIN [Concomitant]
  14. CALCIUM [Concomitant]
  15. KALINOR RET [Concomitant]
  16. PANTOZOL [Concomitant]
  17. METOCLOPRAMIDE [Concomitant]
  18. CYMEVEN [Concomitant]
  19. CIPROBAY [Concomitant]
  20. SAROTEN [Concomitant]
  21. DOXYCICLIN [Concomitant]
  22. ZYVOX [Concomitant]
  23. ENTOCORT [Concomitant]
  24. AVELOX [Concomitant]
  25. CYMEVEN [Concomitant]
  26. ZYVOX [Concomitant]
  27. ALBUMIN (HUMAN) [Concomitant]
  28. FORTUM [Concomitant]
  29. LOPEDUM [Concomitant]
  30. ELOBACT [Concomitant]
  31. ENTOCORT [Concomitant]
  32. ALBUMIN (HUMAN) [Concomitant]
  33. SPIROCOMB [Concomitant]
  34. ACETAMINOPHEN [Concomitant]
  35. MERONEM [Concomitant]
  36. ZYVOX [Concomitant]
  37. OMEPRAZOLE [Concomitant]
  38. ARTERNOL [Concomitant]
  39. KYBERNIN [Concomitant]
  40. DOPAMIN [Concomitant]
  41. ACETAMINOPHEN [Concomitant]
  42. KALINOR RET [Concomitant]

REACTIONS (39)
  - BACTERIAL SEPSIS [None]
  - BENIGN PROSTATIC HYPERPLASIA [None]
  - BLOOD DISORDER [None]
  - CARDIAC FAILURE [None]
  - CHOLELITHIASIS [None]
  - CHOLESTASIS [None]
  - CONDITION AGGRAVATED [None]
  - CONSTIPATION [None]
  - CONVULSION [None]
  - CYTOMEGALOVIRUS INFECTION [None]
  - DISEASE PROGRESSION [None]
  - DRY SKIN [None]
  - EPSTEIN-BARR VIRUS INFECTION [None]
  - EYE DISORDER [None]
  - FUNGAL INFECTION [None]
  - GASTRIC ULCER [None]
  - GASTROINTESTINAL DISORDER [None]
  - GASTROINTESTINAL FUNGAL INFECTION [None]
  - GRAFT VERSUS HOST DISEASE [None]
  - HAEMATEMESIS [None]
  - HEPATIC CONGESTION [None]
  - HEPATIC FAILURE [None]
  - HEPATIC FIBROSIS [None]
  - HEPATIC SIDEROSIS [None]
  - HEPATIC STEATOSIS [None]
  - HUMAN HERPESVIRUS 6 INFECTION [None]
  - LEUKOPENIA [None]
  - LIVER DISORDER [None]
  - PNEUMONIA [None]
  - PULMONARY EMBOLISM [None]
  - REFUSAL OF TREATMENT BY PATIENT [None]
  - RENAL CYST [None]
  - RENAL DISORDER [None]
  - RENAL FAILURE [None]
  - RENAL IMPAIRMENT [None]
  - RESPIRATORY TRACT INFECTION FUNGAL [None]
  - SPLENOMEGALY [None]
  - SYNCOPE [None]
  - SYSTEMIC MYCOSIS [None]
